FAERS Safety Report 4589174-X (Version None)
Quarter: 2005Q1

REPORT INFORMATION
  Report Type: 
  Country: None (occurrence: None)
  Receive Date: 20050215
  Receipt Date: 20050215
  Transmission Date: 20050727
  Serious: Yes (Hospitalization)
  Sender: FDA-Public Use
  Company Number: None

PATIENT
  Age: 66 Year
  Sex: Male
  Weight: 92.9 kg

DRUGS (2)
  1. PHENYTOIN [Suspect]
     Indication: CEREBROVASCULAR ACCIDENT
     Dosage: 400 MG 24 HOURS
     Dates: start: 20050113, end: 20050210
  2. PHENYTOIN [Suspect]
     Indication: CONVULSION
     Dosage: 400 MG 24 HOURS
     Dates: start: 20050113, end: 20050210

REACTIONS (3)
  - HEPATITIS [None]
  - NAUSEA [None]
  - NYSTAGMUS [None]
